FAERS Safety Report 6186537-6 (Version None)
Quarter: 2009Q2

REPORT INFORMATION
  Report Type: 
  Country: None (occurrence: None)
  Receive Date: 20090507
  Receipt Date: 20090507
  Transmission Date: 20091009
  Serious: Yes (Hospitalization)
  Sender: FDA-Public Use
  Company Number: None

PATIENT
  Sex: Male
  Weight: 106.5953 kg

DRUGS (2)
  1. FEXOFENADINE [Suspect]
     Indication: MULTIPLE ALLERGIES
     Dosage: 180 MG DAILY PO
     Route: 048
     Dates: start: 20080901, end: 20081201
  2. FEXOFENADINE [Suspect]
     Indication: SINUS HEADACHE
     Dosage: 180 MG DAILY PO
     Route: 048
     Dates: start: 20080901, end: 20081201

REACTIONS (2)
  - ATRIAL FIBRILLATION [None]
  - CONDITION AGGRAVATED [None]
